FAERS Safety Report 18300336 (Version 1)
Quarter: 2020Q3

REPORT INFORMATION
  Report Type: Spontaneous
  Country: US (occurrence: US)
  Receive Date: 20200922
  Receipt Date: 20200922
  Transmission Date: 20201103
  Serious: No
  Sender: FDA-Public Use
  Company Number: None

PATIENT
  Age: 69 Year
  Sex: Male
  Weight: 77.4 kg

DRUGS (1)
  1. WELLBUTRIN [Suspect]
     Active Substance: BUPROPION HYDROCHLORIDE
     Indication: DEPRESSION
     Route: 048

REACTIONS (9)
  - Anger [None]
  - Gait disturbance [None]
  - Therapy cessation [None]
  - Confusional state [None]
  - Tremor [None]
  - Somnolence [None]
  - Decreased appetite [None]
  - Social problem [None]
  - Condition aggravated [None]

NARRATIVE: CASE EVENT DATE: 20200820
